FAERS Safety Report 6833719-3 (Version None)
Quarter: 2010Q3

REPORT INFORMATION
  Report Type: 
  Country: None (occurrence: None)
  Receive Date: 20100712
  Receipt Date: 20070330
  Transmission Date: 20110219
  Serious: Yes (Other)
  Sender: FDA-Public Use
  Company Number: US-PFIZER INC-2007026997

PATIENT
  Age: 46 Year
  Sex: Female
  Weight: 116.1 kg

DRUGS (13)
  1. CHANTIX [Suspect]
     Indication: SMOKING CESSATION THERAPY
     Route: 048
     Dates: start: 20070301
  2. VICODIN [Concomitant]
     Route: 048
  3. XANAX [Concomitant]
     Route: 048
  4. XOPENEX [Concomitant]
  5. ADVAIR DISKUS 100/50 [Concomitant]
  6. FOSAMAX [Concomitant]
     Route: 048
  7. CALCIUM WITH VITAMIN D [Concomitant]
     Route: 048
  8. PROTONIX [Concomitant]
     Route: 048
  9. ZANTAC [Concomitant]
     Route: 048
  10. PREDNISONE [Concomitant]
     Route: 048
  11. SINGULAIR [Concomitant]
     Route: 048
  12. NASONEX [Concomitant]
  13. CYMBALTA [Concomitant]
     Route: 048

REACTIONS (1)
  - HYPOGLYCAEMIA [None]
